FAERS Safety Report 21522380 (Version 1)
Quarter: 2022Q4

REPORT INFORMATION
  Report Type: Spontaneous
  Country: US (occurrence: US)
  Receive Date: 20221028
  Receipt Date: 20221028
  Transmission Date: 20230112
  Serious: No
  Sender: FDA-Public Use
  Company Number: US-PADAGIS-2022PAD00778

PATIENT

DRUGS (1)
  1. TESTOSTERONE CYPIONATE [Suspect]
     Active Substance: TESTOSTERONE CYPIONATE
     Indication: Product used for unknown indication
     Dosage: 1 ML AS DIRECTED
     Route: 065

REACTIONS (2)
  - Peripheral swelling [Not Recovered/Not Resolved]
  - Product quality issue [Unknown]
